FAERS Safety Report 5471316-5 (Version None)
Quarter: 2007Q3

REPORT INFORMATION
  Report Type: 
  Country: None (occurrence: None)
  Receive Date: 20070928
  Receipt Date: 20070920
  Transmission Date: 20080115
  Serious: Yes (Death)
  Sender: FDA-Public Use
  Company Number: CH-SANOFI-SYNTHELABO-A01200710687

PATIENT
  Age: 60 Year
  Sex: Male

DRUGS (8)
  1. DIOVAN [Concomitant]
     Indication: ESSENTIAL HYPERTENSION
     Route: 048
  2. REMERON [Concomitant]
     Indication: DEPRESSION
     Route: 048
  3. SORTIS [Concomitant]
     Indication: HYPERLIPIDAEMIA
     Route: 048
  4. ANXIOLIT [Suspect]
     Indication: ANXIETY
     Route: 048
  5. SERESTA [Suspect]
     Indication: ANXIETY
     Route: 048
  6. XANAX [Suspect]
     Indication: ANXIETY
     Route: 048
  7. OXYCONTIN [Suspect]
     Indication: PAIN
     Route: 048
  8. STILNOX CR [Suspect]
     Indication: SLEEP DISORDER
     Route: 048

REACTIONS (4)
  - CARDIAC ARREST [None]
  - LOSS OF CONSCIOUSNESS [None]
  - MULTI-ORGAN FAILURE [None]
  - MULTIPLE DRUG OVERDOSE [None]
